FAERS Safety Report 15075164 (Version 1)
Quarter: 2018Q2

REPORT INFORMATION
  Report Type: Spontaneous
  Country: US (occurrence: US)
  Receive Date: 20180627
  Receipt Date: 20180627
  Transmission Date: 20180711
  Serious: Yes (Other)
  Sender: FDA-Public Use
  Company Number: US-SAOL THERAPEUTICS-2017SAO01796

PATIENT
  Age: 59 Year
  Sex: Male

DRUGS (6)
  1. MARCAINE [Suspect]
     Active Substance: BUPIVACAINE HYDROCHLORIDE
     Dosage: 3.198 MG, \DAY
     Route: 037
     Dates: start: 20171101
  2. BACLOFEN. [Suspect]
     Active Substance: BACLOFEN
     Dosage: 2.417 MG, \DAY
     Route: 037
  3. BACLOFEN. [Suspect]
     Active Substance: BACLOFEN
     Dosage: 2.558 MG, \DAY
     Route: 037
     Dates: start: 20171101
  4. FENTANYL. [Suspect]
     Active Substance: FENTANYL
     Dosage: 22.387 MG, \DAY
     Route: 037
     Dates: start: 20171101
  5. MARCAINE [Suspect]
     Active Substance: BUPIVACAINE HYDROCHLORIDE
     Dosage: 3.021 MG, \DAY
     Route: 037
  6. FENTANYL. [Suspect]
     Active Substance: FENTANYL
     Dosage: 21.144 MG, \DAY
     Route: 037

REACTIONS (3)
  - Drug withdrawal syndrome [Unknown]
  - Device malfunction [Not Recovered/Not Resolved]
  - Pain [Unknown]

NARRATIVE: CASE EVENT DATE: 20171105
